FAERS Safety Report 6588771-X (Version None)
Quarter: 2010Q1

REPORT INFORMATION
  Report Type: 
  Country: None (occurrence: None)
  Receive Date: 20100218
  Receipt Date: 20100208
  Transmission Date: 20100710
  Serious: Yes (Hospitalization)
  Sender: FDA-Public Use
  Company Number: CN-WATSON-2010-01677

PATIENT
  Age: 74 Year
  Sex: Male

DRUGS (1)
  1. CLONAZEPAM [Suspect]
     Indication: SLEEP DISORDER
     Dosage: 2 MG, QHS
     Route: 048

REACTIONS (1)
  - ATRIAL FIBRILLATION [None]
